FAERS Safety Report 9251999 (Version 9)
Quarter: 2014Q2

REPORT INFORMATION
  Report Type: Report from Study
  Country: DE (occurrence: DE)
  Receive Date: 20130424
  Receipt Date: 20140428
  Transmission Date: 20141212
  Serious: Yes (Hospitalization)
  Sender: FDA-Public Use
  Company Number: DE-ROCHE-1214211

PATIENT
  Age: 41 Year
  Sex: Female
  Weight: 53 kg

DRUGS (34)
  1. METAMIZOL [Concomitant]
     Indication: PAIN
     Dosage: 30 DROPS
     Route: 048
     Dates: start: 20121003
  2. DEKRISTOL [Concomitant]
     Indication: VITAMIN D DEFICIENCY
     Route: 048
     Dates: start: 201103
  3. PREDNISOLONE [Concomitant]
     Indication: SCLERODERMA
     Route: 065
     Dates: start: 201301, end: 201302
  4. SPIRONOTHIAZID [Concomitant]
     Indication: OEDEMA
     Route: 065
     Dates: start: 201301, end: 201302
  5. BELOC-ZOK MITE [Concomitant]
     Indication: CARDIAC FAILURE
     Route: 048
     Dates: start: 20130415
  6. SODIUM BICARBONATE [Concomitant]
     Indication: ACIDOSIS
     Route: 042
     Dates: start: 20130415, end: 20130415
  7. TOREM [Concomitant]
     Indication: PLEURAL EFFUSION
     Route: 048
     Dates: start: 20130415, end: 20130415
  8. TOREM [Concomitant]
     Route: 048
     Dates: start: 20130416, end: 20130416
  9. TOREM [Concomitant]
     Route: 048
     Dates: start: 20130413, end: 20130414
  10. TOREM [Concomitant]
     Route: 048
     Dates: start: 20130414, end: 20130414
  11. TOREM [Concomitant]
     Route: 048
     Dates: start: 20130419, end: 20130426
  12. TOREM [Concomitant]
     Route: 048
     Dates: start: 20130427, end: 20130430
  13. TOREM [Concomitant]
     Route: 048
     Dates: start: 20130501
  14. TOREM [Concomitant]
     Route: 048
     Dates: start: 20130501
  15. FURESIS [Concomitant]
     Indication: PLEURAL EFFUSION
     Route: 042
     Dates: start: 20130417, end: 20130419
  16. FURESIS [Concomitant]
     Route: 042
     Dates: start: 20130412, end: 20130413
  17. DELIX (GERMANY) [Concomitant]
     Indication: CARDIAC FAILURE
     Route: 048
     Dates: start: 20130418, end: 20130418
  18. DELIX (GERMANY) [Concomitant]
     Indication: HYPERTENSION
     Route: 048
     Dates: start: 20130413, end: 20130413
  19. DELIX (GERMANY) [Concomitant]
     Route: 048
     Dates: start: 20130420
  20. MODIP [Concomitant]
     Indication: HYPERTENSION
     Route: 048
     Dates: start: 20130418, end: 20130419
  21. MODIP [Concomitant]
     Route: 048
     Dates: start: 20130420
  22. PANTOZOL (GERMANY) [Concomitant]
     Indication: GASTRITIS PROPHYLAXIS
     Route: 048
     Dates: start: 20130418, end: 20130517
  23. HEPARIN [Concomitant]
     Indication: THROMBOSIS PROPHYLAXIS
     Route: 058
     Dates: start: 20130418, end: 20130503
  24. KALINOR [Concomitant]
     Indication: HYPOKALAEMIA
     Dosage: 1 TABLET
     Route: 048
     Dates: start: 20130413, end: 20130414
  25. BELOC-ZOK [Concomitant]
     Indication: HYPERTENSION
     Route: 048
     Dates: start: 20130413, end: 20130415
  26. BELOC-ZOK [Concomitant]
     Indication: CARDIAC FAILURE
     Route: 048
     Dates: start: 20130424, end: 20130425
  27. BELOC-ZOK [Concomitant]
     Route: 048
     Dates: start: 20130426, end: 20130617
  28. BELOC-ZOK [Concomitant]
     Dosage: 95 TABLETS
     Route: 048
     Dates: start: 20130617
  29. BELOC-ZOK [Concomitant]
     Route: 048
     Dates: start: 20130415, end: 20130424
  30. NITROLINGUAL [Concomitant]
     Indication: HYPERTENSION
     Dosage: 1 SPRAY
     Route: 048
     Dates: start: 20130412, end: 20130413
  31. ARIXTRA [Concomitant]
     Indication: THROMBOSIS PROPHYLAXIS
     Route: 058
     Dates: start: 20130412, end: 20130414
  32. BICANORM [Concomitant]
     Indication: ACIDOSIS
     Route: 048
     Dates: start: 20130430
  33. AQUAPHOR (GERMANY) [Concomitant]
     Indication: OEDEMA
     Route: 048
     Dates: start: 20130420, end: 20130423
  34. TOCILIZUMAB [Suspect]
     Indication: SCLERODERMA
     Route: 058
     Dates: start: 20121108

REACTIONS (1)
  - Haemolytic uraemic syndrome [Recovering/Resolving]
